FAERS Safety Report 5264157-5 (Version None)
Quarter: 2007Q1

REPORT INFORMATION
  Report Type: 
  Country: None (occurrence: None)
  Receive Date: 20070313
  Receipt Date: 20070301
  Transmission Date: 20070707
  Serious: Yes (Other)
  Sender: FDA-Public Use
  Company Number: US-PFIZER INC-2007016570

PATIENT
  Sex: Female

DRUGS (1)
  1. NEURONTIN [Suspect]
     Dates: start: 20050401, end: 20061001

REACTIONS (5)
  - BRUXISM [None]
  - ENAMEL ANOMALY [None]
  - MUSCLE SPASMS [None]
  - PAIN [None]
  - TOOTH DISORDER [None]
